FAERS Safety Report 20423612 (Version 4)
Quarter: 2024Q4

REPORT INFORMATION
  Report Type: Spontaneous
  Country: JP (occurrence: JP)
  Receive Date: 20220203
  Receipt Date: 20241106
  Transmission Date: 20250115
  Serious: Yes (Hospitalization, Other)
  Sender: LUNDBECK
  Company Number: JP-SANOFI-2017SA268989

PATIENT

DRUGS (38)
  1. SABRIL [Suspect]
     Active Substance: VIGABATRIN
     Indication: Infantile spasms
     Dosage: 150 MG, BID
     Route: 048
     Dates: start: 20160921, end: 20160925
  2. SABRIL [Suspect]
     Active Substance: VIGABATRIN
     Dosage: 150 MG, BID
     Route: 048
     Dates: start: 20170804, end: 20171005
  3. SABRIL [Suspect]
     Active Substance: VIGABATRIN
     Dosage: 225 MG, BID
     Route: 048
     Dates: start: 20171006, end: 20171012
  4. SABRIL [Suspect]
     Active Substance: VIGABATRIN
     Dosage: 300 MG, BID
     Route: 048
     Dates: start: 20171013, end: 20171116
  5. SABRIL [Suspect]
     Active Substance: VIGABATRIN
     Dosage: 375 MG, BID
     Route: 048
     Dates: start: 20171117, end: 20180729
  6. SABRIL [Suspect]
     Active Substance: VIGABATRIN
     Dosage: 400 MG, BID
     Route: 048
     Dates: start: 20180730
  7. SABRIL [Suspect]
     Active Substance: VIGABATRIN
     Dosage: 300 MG, BID
     Route: 048
     Dates: start: 20160926, end: 20161003
  8. SABRIL [Suspect]
     Active Substance: VIGABATRIN
     Dosage: 450 MG, BID
     Route: 048
     Dates: start: 20161004, end: 20161007
  9. SABRIL [Suspect]
     Active Substance: VIGABATRIN
     Dosage: 300 MG, BID
     Route: 048
     Dates: start: 20161008, end: 20161013
  10. SABRIL [Suspect]
     Active Substance: VIGABATRIN
     Dosage: 375 MG, BID
     Route: 048
     Dates: start: 20161014, end: 20170211
  11. SABRIL [Suspect]
     Active Substance: VIGABATRIN
     Dosage: 300 MG, BID
     Route: 048
     Dates: start: 20170212, end: 20170218
  12. SABRIL [Suspect]
     Active Substance: VIGABATRIN
     Dosage: 225 MG, BID
     Route: 048
     Dates: start: 20170219, end: 20170223
  13. SABRIL [Suspect]
     Active Substance: VIGABATRIN
     Dosage: 150 MG, BID
     Route: 048
     Dates: start: 20170224, end: 20170306
  14. SABRIL [Suspect]
     Active Substance: VIGABATRIN
     Dosage: 75 MG, BID
     Route: 048
     Dates: start: 20170307, end: 20170313
  15. LEVETIRACETAM [Concomitant]
     Active Substance: LEVETIRACETAM
     Indication: Infantile spasms
     Dosage: 900 MG/DAY
     Route: 048
     Dates: end: 20170803
  16. LEVETIRACETAM [Concomitant]
     Active Substance: LEVETIRACETAM
     Dosage: 700 MG/DAY
     Route: 048
     Dates: start: 20170804, end: 20170922
  17. LEVETIRACETAM [Concomitant]
     Active Substance: LEVETIRACETAM
     Dosage: 700 MG/DAY
     Route: 050
     Dates: start: 20170923, end: 20210702
  18. ZONISAMIDE [Concomitant]
     Active Substance: ZONISAMIDE
     Indication: Infantile spasms
     Dosage: 80 MG/DAY
     Route: 048
  19. ZONISAMIDE [Concomitant]
     Active Substance: ZONISAMIDE
     Dosage: 80 MG/DAY
     Route: 050
     Dates: end: 20210221
  20. TRICHLORMETHIAZIDE [Concomitant]
     Active Substance: TRICHLORMETHIAZIDE
     Indication: Nephrolithiasis
     Dosage: 0.4 MG/DAY
     Route: 050
  21. LEVOTHYROXINE SODIUM [Concomitant]
     Active Substance: LEVOTHYROXINE SODIUM
     Indication: Product used for unknown indication
     Dosage: 7 MCG/DAY
     Route: 048
     Dates: end: 20161023
  22. CARBOCYSTEINE [Concomitant]
     Active Substance: CARBOCYSTEINE
     Indication: Nephrolithiasis
     Dosage: 200 MG/DAY
     Route: 048
     Dates: end: 20161213
  23. CARBOCYSTEINE [Concomitant]
     Active Substance: CARBOCYSTEINE
     Dosage: 300 MG/DAY
     Route: 048
     Dates: start: 20161214, end: 20180727
  24. CARBOCYSTEINE [Concomitant]
     Active Substance: CARBOCYSTEINE
     Dosage: 270 MG/DAY
     Route: 050
     Dates: start: 20180728, end: 20181028
  25. CARBOCYSTEINE [Concomitant]
     Active Substance: CARBOCYSTEINE
     Dosage: 250 MG/DAY
     Route: 050
     Dates: start: 20181029
  26. TAURINE [Concomitant]
     Active Substance: TAURINE
     Indication: Prophylaxis
     Dosage: 0.3 G/DAY
     Route: 048
     Dates: start: 20160921, end: 20170316
  27. TAURINE [Concomitant]
     Active Substance: TAURINE
     Indication: Investigation
     Dosage: 0.3 G/DAY
     Route: 048
     Dates: start: 20170804, end: 20170922
  28. TAURINE [Concomitant]
     Active Substance: TAURINE
     Dosage: 0.3 G/DAY
     Route: 050
     Dates: start: 20170923
  29. VITAMINS [Concomitant]
     Active Substance: VITAMINS
     Indication: Prophylaxis
  30. VITAMINS [Concomitant]
     Active Substance: VITAMINS
     Indication: Investigation
     Dosage: 0.5 G/DAY
     Route: 050
     Dates: start: 20181010
  31. CARTINE L [Concomitant]
     Indication: Investigation
  32. CARTINE L [Concomitant]
     Indication: Prophylaxis
     Dosage: 1 ML/DAY
     Route: 050
     Dates: start: 20181010
  33. URALYT URATO [Concomitant]
     Indication: Nephrolithiasis
     Dosage: 0.8 G/DAY
     Route: 050
     Dates: start: 20181029, end: 20181230
  34. URALYT URATO [Concomitant]
     Dosage: 1.2 G/DAY
     Route: 050
     Dates: start: 20181231, end: 20190204
  35. URALYT URATO [Concomitant]
     Dosage: 1.6 G/DAY
     Route: 050
     Dates: start: 20190205
  36. ALLOPURINOL [Concomitant]
     Active Substance: ALLOPURINOL
     Indication: Nephrolithiasis
     Dosage: 80 MG/DAY
     Route: 050
     Dates: start: 20181029
  37. RIKKUNSHITO [ATRACTYLODES LANCEA RHIZOME;CITRUS X AURANTIUM PEEL;GLYCY [Concomitant]
     Indication: Prophylaxis
     Dosage: 3.3 G/DAY
     Route: 050
     Dates: start: 20200904
  38. RIKKUNSHITO [ATRACTYLODES LANCEA RHIZOME;CITRUS X AURANTIUM PEEL;GLYCY [Concomitant]
     Indication: Investigation

REACTIONS (7)
  - Pneumonia aspiration [Recovered/Resolved]
  - Bronchitis [Recovered/Resolved]
  - Delayed light adaptation [Recovered/Resolved]
  - Retinogram abnormal [Recovered/Resolved]
  - Visual field defect [Not Recovered/Not Resolved]
  - Delayed dark adaptation [Recovered/Resolved]
  - Somnolence [Recovered/Resolved]

NARRATIVE: CASE EVENT DATE: 20161012
